FAERS Safety Report 10585554 (Version 1)
Quarter: 2014Q4

REPORT INFORMATION
  Report Type: Spontaneous
  Country: HR (occurrence: None)
  Receive Date: 20141113
  Receipt Date: 20141113
  Transmission Date: 20150529
  Serious: Yes (Hospitalization, Other)
  Sender: FDA-Public Use
  Company Number: HR-ZYDUS-005432

PATIENT
  Age: 26 Year
  Sex: Male

DRUGS (1)
  1. VALPROIC ACID (VALPROIC ACID) [Suspect]
     Active Substance: VALPROIC ACID

REACTIONS (8)
  - Intentional overdose [None]
  - Muscular weakness [None]
  - Neuropathy peripheral [None]
  - Mononeuropathy [None]
  - Mental status changes [None]
  - Peripheral nerve paresis [None]
  - Suicide attempt [None]
  - Toxicity to various agents [None]
